FAERS Safety Report 14779721 (Version 1)
Quarter: 2018Q2

REPORT INFORMATION
  Report Type: Spontaneous
  Country: GB (occurrence: GB)
  Receive Date: 20180419
  Receipt Date: 20180419
  Transmission Date: 20180711
  Serious: Yes (Life-Threatening, Hospitalization)
  Sender: FDA-Public Use
  Company Number: GB-MYLANLABS-2018M1024173

PATIENT
  Age: 61 Year
  Sex: Male

DRUGS (14)
  1. TRIAMCINOLONE [Suspect]
     Active Substance: TRIAMCINOLONE
     Indication: UVEITIS
     Dosage: INITIAL DOSE UNKNOWN
     Route: 050
  2. PREDNISOLONE. [Suspect]
     Active Substance: PREDNISOLONE
     Indication: UVEITIS
     Dosage: 1.5 MG/KG
     Route: 065
  3. AZATHIOPRINE. [Suspect]
     Active Substance: AZATHIOPRINE
     Indication: UVEITIS
     Route: 065
  4. INFLIXIMAB [Suspect]
     Active Substance: INFLIXIMAB
     Dosage: 6 WEEKLY
  5. MYCOPHENOLATE MOFETIL. [Suspect]
     Active Substance: MYCOPHENOLATE MOFETIL
     Route: 065
  6. COTRIMOXAZOLE [Concomitant]
     Active Substance: SULFAMETHOXAZOLE\TRIMETHOPRIM
     Indication: LYMPHOPENIA
  7. INFLIXIMAB [Suspect]
     Active Substance: INFLIXIMAB
     Dosage: 5 MG/KG 8WEEKLY
     Route: 050
  8. PREDNISOLONE. [Suspect]
     Active Substance: PREDNISOLONE
     Dosage: FURTHER INCREASED TO 40MG/DAY
     Route: 065
  9. METHYLPREDNISOLONE. [Suspect]
     Active Substance: METHYLPREDNISOLONE
     Indication: UVEITIS
     Dosage: THREE DOSES OF 1G EACH
     Route: 042
  10. INFLIXIMAB [Suspect]
     Active Substance: INFLIXIMAB
     Indication: UVEITIS
     Dosage: 5 MG/KG AT WEEKS0, 2 AND 6,
     Route: 050
  11. TRIAMCINOLONE [Suspect]
     Active Substance: TRIAMCINOLONE
     Dosage: 2 INJECTIONS
     Route: 050
  12. MYCOPHENOLATE MOFETIL. [Suspect]
     Active Substance: MYCOPHENOLATE MOFETIL
     Indication: UVEITIS
     Dosage: INITIAL DOSE UNKNWON
     Route: 065
  13. AMOXICILLIN. [Concomitant]
     Active Substance: AMOXICILLIN
     Indication: LOWER RESPIRATORY TRACT INFECTION
  14. PREDNISOLONE. [Suspect]
     Active Substance: PREDNISOLONE
     Dosage: AGAIN DECREASED TO 20MG/DAY
     Route: 065

REACTIONS (9)
  - Intestinal obstruction [Recovering/Resolving]
  - Pneumonia [Recovered/Resolved]
  - Lower respiratory tract infection [Recovered/Resolved]
  - Sepsis [Recovering/Resolving]
  - Glaucoma [Unknown]
  - Lymphopenia [Unknown]
  - Respiratory disorder [Recovering/Resolving]
  - Multi-organ disorder [Recovering/Resolving]
  - Pneumocystis jirovecii pneumonia [Recovering/Resolving]
